FAERS Safety Report 23874473 (Version 1)
Quarter: 2024Q2

REPORT INFORMATION
  Report Type: Spontaneous
  Country: US (occurrence: None)
  Receive Date: 20240519
  Receipt Date: 20240519
  Transmission Date: 20240716
  Serious: Yes (Hospitalization)
  Sender: FDA-Public Use
  Company Number: None

PATIENT
  Age: 43 Year
  Sex: Female

DRUGS (2)
  1. ENBREL [Suspect]
     Active Substance: BENZYL ALCOHOL\ETANERCEPT
     Indication: Psoriatic arthropathy
     Dosage: FREQUENCY : DAILY;?
     Route: 058
     Dates: start: 202311
  2. RUCONEST SDV [Concomitant]

REACTIONS (3)
  - Gastrointestinal pain [None]
  - Nonspecific reaction [None]
  - Therapy interrupted [None]

NARRATIVE: CASE EVENT DATE: 20240429
